FAERS Safety Report 17833611 (Version 2)
Quarter: 2020Q2

REPORT INFORMATION
  Report Type: Report from Study
  Country: JP (occurrence: JP)
  Receive Date: 20200528
  Receipt Date: 20200609
  Transmission Date: 20200714
  Serious: Yes (Other)
  Sender: FDA-Public Use
  Company Number: JP-BEH-2020118024

PATIENT
  Age: 87 Year
  Sex: Male
  Weight: 56 kg

DRUGS (4)
  1. BERIPLEX P/N [Suspect]
     Active Substance: COAGULATION FACTOR IX HUMAN\COAGULATION FACTOR VII HUMAN\COAGULATION FACTOR X HUMAN\PROTEIN C\PROTEIN S HUMAN\PROTHROMBIN
     Indication: HAEMORRHAGE
     Dosage: 1500 INTERNATIONAL UNIT, TOT 10 MINUTES
     Route: 042
     Dates: start: 20190208, end: 20190208
  2. LIXIANA [Concomitant]
     Active Substance: EDOXABAN TOSYLATE
     Indication: THROMBOSIS PROPHYLAXIS
     Dosage: 60 MILLIGRAM, QD
     Route: 065
     Dates: start: 20190214
  3. BERIPLEX P/N [Suspect]
     Active Substance: COAGULATION FACTOR IX HUMAN\COAGULATION FACTOR VII HUMAN\COAGULATION FACTOR X HUMAN\PROTEIN C\PROTEIN S HUMAN\PROTHROMBIN
     Indication: HAEMORRHAGE
     Dosage: 1500 INTERNATIONAL UNIT, TOT 10 MINUTES
     Route: 042
     Dates: start: 20190208, end: 20190208
  4. VITAMIN K [Concomitant]
     Active Substance: PHYTONADIONE
     Route: 065

REACTIONS (2)
  - Hemiplegia [Recovered/Resolved with Sequelae]
  - Cerebral infarction [Recovered/Resolved with Sequelae]

NARRATIVE: CASE EVENT DATE: 20190210
